FAERS Safety Report 18588637 (Version 5)
Quarter: 2022Q4

REPORT INFORMATION
  Report Type: Report from Study
  Country: JP (occurrence: JP)
  Receive Date: 20201207
  Receipt Date: 20221117
  Transmission Date: 20230113
  Serious: Yes (Hospitalization, Other)
  Sender: FDA-Public Use
  Company Number: JP-BRISTOL-MYERS SQUIBB COMPANY-BMS-2020-101590

PATIENT
  Age: 67 Year
  Sex: Male
  Weight: 46 kg

DRUGS (32)
  1. DOCETAXEL [Suspect]
     Active Substance: DOCETAXEL
     Indication: Prostate cancer
     Dosage: MOST RECENT DOSE RECEIVED ON 17-NOV-2020
     Route: 065
     Dates: start: 20201027, end: 20201117
  2. PREDNISONE [Concomitant]
     Active Substance: PREDNISONE
     Indication: Prostate cancer
     Dosage: 27-OCT-2020 TO 16-NOV-2020: 10 MILLIGRAM?18-NOV-2020 TO 30-NOV-2020: 10 MILLIGRAM
     Route: 065
     Dates: start: 20201027, end: 20201130
  3. TAMSULOSIN HYDROCHLORIDE [Concomitant]
     Active Substance: TAMSULOSIN HYDROCHLORIDE
     Indication: Product used for unknown indication
     Dosage: 0.2 ?????
     Route: 048
     Dates: start: 20200512, end: 20210412
  4. TAMSULOSIN HYDROCHLORIDE [Concomitant]
     Active Substance: TAMSULOSIN HYDROCHLORIDE
  5. MIYA-BM [Concomitant]
     Active Substance: CLOSTRIDIUM BUTYRICUM SPORES STRAIN M-55
     Indication: Prophylaxis
     Dosage: 1 DOSAGE FORM = 6 UNIT NOS
     Route: 048
     Dates: start: 20201022, end: 20201117
  6. MIYA-BM [Concomitant]
     Active Substance: CLOSTRIDIUM BUTYRICUM SPORES STRAIN M-55
     Dosage: 1 DOSAGE FORM = 3 UNITS NOS
     Route: 048
     Dates: start: 20201118, end: 20201207
  7. DENOSUMAB [Concomitant]
     Active Substance: DENOSUMAB
     Indication: Product used for unknown indication
     Dosage: 120 ?????
     Route: 058
     Dates: start: 20200804
  8. LOXOPROFEN SODIUM DIHYDRATE [Concomitant]
     Active Substance: LOXOPROFEN SODIUM DIHYDRATE
     Indication: Product used for unknown indication
     Dosage: 60 ?????
     Route: 048
     Dates: start: 20201021, end: 20201210
  9. LOXOPROFEN SODIUM DIHYDRATE [Concomitant]
     Active Substance: LOXOPROFEN SODIUM DIHYDRATE
  10. HEPARINOID [Concomitant]
     Indication: Product used for unknown indication
     Dosage: 2 ???
     Route: 061
     Dates: start: 20201030, end: 20201120
  11. HEPARINOID [Concomitant]
     Route: 062
     Dates: start: 20201031
  12. ALFACALCIDOL [Concomitant]
     Active Substance: ALFACALCIDOL
     Indication: Prophylaxis
     Route: 048
     Dates: start: 20201027
  13. SOLYUGEN G [Concomitant]
     Indication: Decreased appetite
     Route: 042
     Dates: start: 20201124, end: 20201124
  14. SOLYUGEN G [Concomitant]
     Route: 042
     Dates: start: 20201127, end: 20201202
  15. SOLYUGEN G [Concomitant]
     Route: 042
     Dates: start: 20201128, end: 20201201
  16. ACETAMINOPHEN [Concomitant]
     Active Substance: ACETAMINOPHEN
     Indication: Product used for unknown indication
     Route: 048
     Dates: start: 20201126, end: 20201128
  17. ACETAMINOPHEN [Concomitant]
     Active Substance: ACETAMINOPHEN
     Dosage: 2000 MILLIGRAM
     Route: 048
     Dates: start: 20200518, end: 20210202
  18. OMEPRAZOLE SODIUM [Concomitant]
     Active Substance: OMEPRAZOLE SODIUM
     Indication: Prophylaxis
     Dosage: QD
     Route: 042
     Dates: start: 20201130
  19. OMEPRAZOLE SODIUM [Concomitant]
     Active Substance: OMEPRAZOLE SODIUM
  20. FAMOTIDINE [Concomitant]
     Active Substance: FAMOTIDINE
     Indication: Prophylaxis
     Dosage: 20 ?????
     Route: 048
     Dates: start: 20200511, end: 20201129
  21. SUVOREXANT [Concomitant]
     Active Substance: SUVOREXANT
     Indication: Prophylaxis
     Route: 048
     Dates: start: 20201127, end: 20201128
  22. SOLDEM 3A [Concomitant]
     Active Substance: CARBOHYDRATES\POTASSIUM CHLORIDE\SODIUM CHLORIDE\SODIUM LACTATE
     Indication: Product used for unknown indication
     Dosage: 1000 UNITS NOS)
     Route: 042
     Dates: start: 20200924, end: 20201230
  23. SOLDEM 3A [Concomitant]
     Active Substance: CARBOHYDRATES\POTASSIUM CHLORIDE\SODIUM CHLORIDE\SODIUM LACTATE
  24. DEXAMETHASONE SODIUM PHOSPHATE [Concomitant]
     Active Substance: DEXAMETHASONE SODIUM PHOSPHATE
     Indication: Product used for unknown indication
     Dosage: 6.6 ?????
     Route: 042
     Dates: start: 20201117, end: 20201117
  25. METHYLCOBALAMIN [Concomitant]
     Active Substance: METHYLCOBALAMIN
     Indication: Peripheral sensory neuropathy
     Dosage: 1500 ???????
     Route: 048
     Dates: start: 20201117
  26. MAGNESIUM OXIDE [Concomitant]
     Active Substance: MAGNESIUM OXIDE
     Indication: Product used for unknown indication
     Dosage: 990 ?????
     Route: 048
     Dates: start: 20200511, end: 20201019
  27. OXYCODONE HYDROCHLORIDE TRIHYDRATE [Concomitant]
     Active Substance: OXYCODONE HYDROCHLORIDE TRIHYDRATE
     Indication: Product used for unknown indication
     Dosage: 20 ??????UNKNOWN INDICATION = THERAPEUTIC; 10 MILLIGRAM ON 23-OCT-2020; 60 MILLIGRAM FROM 23-OCT-202
     Route: 048
     Dates: start: 20200211
  28. OXYCODONE HYDROCHLORIDE TRIHYDRATE [Concomitant]
     Active Substance: OXYCODONE HYDROCHLORIDE TRIHYDRATE
     Dosage: 20 ??????UNKNOWN INDICATION = THERAPEUTIC; 10 MILLIGRAM ON 23-OCT-2020; 60 MILLIGRAM FROM 23-OCT-202
     Route: 048
     Dates: start: 20201023
  29. CARBOCYSTEINE [Concomitant]
     Active Substance: CARBOCYSTEINE
     Indication: Product used for unknown indication
     Dosage: 1500 ?????
     Route: 048
     Dates: start: 20201024, end: 20201102
  30. CALCIUM LACTATE [Concomitant]
     Active Substance: CALCIUM LACTATE
     Indication: Prophylaxis
     Dosage: 3 ???
     Route: 048
     Dates: start: 20201027
  31. VITAMEDIN [BENFOTIAMINE;CYANOCOBALAMIN;PYRIDOXINE HYDROCHLORIDE] [Concomitant]
     Indication: Decreased appetite
     Dosage: 1 UNIT NOS
     Route: 042
     Dates: start: 20201124, end: 20201124
  32. PEGFILGRASTIM [Concomitant]
     Active Substance: PEGFILGRASTIM
     Indication: Prophylaxis
     Route: 058
     Dates: start: 20201119, end: 20201119

REACTIONS (2)
  - Liver injury [Not Recovered/Not Resolved]
  - Enterocolitis [Recovered/Resolved]

NARRATIVE: CASE EVENT DATE: 20201126
